FAERS Safety Report 16010145 (Version 2)
Quarter: 2019Q1

REPORT INFORMATION
  Report Type: Spontaneous
  Country: JP (occurrence: JP)
  Receive Date: 20190225
  Receipt Date: 20190305
  Transmission Date: 20190418
  Serious: Yes (Other)
  Sender: FDA-Public Use
  Company Number: JP-ROCHE-2272059

PATIENT
  Age: 71 Year
  Sex: Male

DRUGS (2)
  1. XOFLUZA [Suspect]
     Active Substance: BALOXAVIR MARBOXIL
     Indication: INFLUENZA
     Route: 048
  2. CALONAL [Concomitant]
     Active Substance: ACETAMINOPHEN

REACTIONS (1)
  - Loss of consciousness [Recovered/Resolved]
